FAERS Safety Report 7238998-9 (Version None)
Quarter: 2011Q1

REPORT INFORMATION
  Report Type: 
  Country: None (occurrence: None)
  Receive Date: 20110121
  Receipt Date: 20110120
  Transmission Date: 20110831
  Serious: Yes (Other)
  Sender: FDA-Public Use
  Company Number: US-PFIZER INC-2011014634

PATIENT
  Sex: Female
  Weight: 107.3 kg

DRUGS (5)
  1. LOVASTATIN [Concomitant]
     Dosage: 40 MG, 2X/DAY
  2. ASPIRIN [Concomitant]
     Dosage: 325 MG, 1X/DAY
  3. CHANTIX [Suspect]
     Indication: SMOKING CESSATION THERAPY
     Dosage: 0.5 MG, 1X/DAY
     Route: 048
     Dates: start: 20110106
  4. ADVAIR DISKUS 100/50 [Concomitant]
     Dosage: 250/50 MCG
  5. LOSARTAN [Concomitant]
     Dosage: 100 MG, 1X/DAY

REACTIONS (4)
  - ABDOMINAL PAIN UPPER [None]
  - MALAISE [None]
  - NAUSEA [None]
  - BLOOD PRESSURE INCREASED [None]
